FAERS Safety Report 6549760-4 (Version None)
Quarter: 2010Q1

REPORT INFORMATION
  Report Type: 
  Country: None (occurrence: None)
  Receive Date: 20100125
  Receipt Date: 20100113
  Transmission Date: 20100710
  Serious: Yes (Death, Hospitalization)
  Sender: FDA-Public Use
  Company Number: DE-MPIJNJ-2010-00838

PATIENT

DRUGS (3)
  1. VELCADE [Suspect]
     Indication: MULTIPLE MYELOMA
     Dosage: 2.6 MG, UNK
     Route: 042
     Dates: start: 20090831, end: 20091109
  2. FORTECORTIN                        /00016001/ [Concomitant]
     Dosage: 2.6 MG, UNK
     Route: 048
     Dates: start: 20090831, end: 20091109
  3. VERGENTAN [Concomitant]
     Dosage: 8 MG, UNK
     Route: 042
     Dates: start: 20090831, end: 20091109

REACTIONS (1)
  - FEBRILE INFECTION [None]
